FAERS Safety Report 5443846-3 (Version None)
Quarter: 2007Q3

REPORT INFORMATION
  Report Type: 
  Country: None (occurrence: None)
  Receive Date: 20070905
  Receipt Date: 20070822
  Transmission Date: 20080115
  Serious: No
  Sender: FDA-Public Use
  Company Number: US-BOEHRINGER INGELHEIM PHARMACEUTICALS, INC.-2007-BP-18004BP

PATIENT
  Sex: Female

DRUGS (7)
  1. SPIRIVA [Suspect]
     Indication: PULMONARY FIBROSIS
     Route: 055
     Dates: start: 20070102
  2. SPIRIVA [Suspect]
     Indication: CHRONIC OBSTRUCTIVE PULMONARY DISEASE
  3. ADVAIR DISKUS 100/50 [Suspect]
     Indication: PULMONARY FIBROSIS
     Dates: start: 20070102
  4. LIPITOR [Concomitant]
     Indication: BLOOD CHOLESTEROL INCREASED
  5. DARVOCET [Concomitant]
     Indication: BACK PAIN
  6. FOSAMAX [Concomitant]
  7. ASPIRIN [Concomitant]

REACTIONS (2)
  - EYE DISORDER [None]
  - TREMOR [None]
